FAERS Safety Report 13757660 (Version 1)
Quarter: 2017Q3

REPORT INFORMATION
  Report Type: Spontaneous
  Country: US (occurrence: US)
  Receive Date: 20170717
  Receipt Date: 20170717
  Transmission Date: 20171127
  Serious: Yes (Hospitalization, Other)
  Sender: FDA-Public Use
  Company Number: US-ROCHE-1962147

PATIENT
  Sex: Male
  Weight: 103.7 kg

DRUGS (11)
  1. RITUXAN [Suspect]
     Active Substance: RITUXIMAB
     Indication: HAEMOPHILIA A WITH ANTI FACTOR VIII
     Route: 065
  2. DILAUDID [Concomitant]
     Active Substance: HYDROMORPHONE HYDROCHLORIDE
  3. SYNTHROID [Concomitant]
     Active Substance: LEVOTHYROXINE SODIUM
  4. TOPROL XL [Concomitant]
     Active Substance: METOPROLOL SUCCINATE
  5. GAZYVA [Suspect]
     Active Substance: OBINUTUZUMAB
     Indication: HAEMOPHILIA A WITH ANTI FACTOR VIII
     Route: 065
  6. NOVOSEVEN RT [Concomitant]
     Active Substance: COAGULATION FACTOR VIIA RECOMBINANT HUMAN
     Route: 065
  7. NEXIUM [Concomitant]
     Active Substance: ESOMEPRAZOLE MAGNESIUM
  8. FENTANYL. [Concomitant]
     Active Substance: FENTANYL
  9. LASIX [Concomitant]
     Active Substance: FUROSEMIDE
  10. ALDACTONE [Concomitant]
     Active Substance: SPIRONOLACTONE
  11. BORTEZOMIB [Concomitant]
     Active Substance: BORTEZOMIB

REACTIONS (10)
  - Syncope [Unknown]
  - Sepsis [Unknown]
  - Arteriovenous fistula site complication [Unknown]
  - Compartment syndrome [Unknown]
  - Myocardial ischaemia [Unknown]
  - Arteriovenous fistula thrombosis [Unknown]
  - Poor venous access [Unknown]
  - Infection [Unknown]
  - Cardiac failure congestive [Unknown]
  - Drug ineffective [Unknown]
